FAERS Safety Report 10103535 (Version 2)
Quarter: 2014Q2

REPORT INFORMATION
  Report Type: Spontaneous
  Country: US (occurrence: US)
  Receive Date: 20140424
  Receipt Date: 20140620
  Transmission Date: 20141212
  Serious: Yes (Other)
  Sender: FDA-Public Use
  Company Number: US-BRISTOL-MYERS SQUIBB COMPANY-20538971

PATIENT
  Age: 58 Year
  Sex: Female
  Weight: 86.53 kg

DRUGS (3)
  1. ELIQUIS [Suspect]
     Indication: CEREBROVASCULAR ACCIDENT PROPHYLAXIS
     Route: 048
     Dates: start: 20140228, end: 20140307
  2. FLECAINIDE [Concomitant]
     Route: 048
  3. NEXIUM [Concomitant]
     Route: 048
     Dates: start: 20140227

REACTIONS (1)
  - Abdominal wall haematoma [Recovered/Resolved]
